FAERS Safety Report 15368123 (Version 1)
Quarter: 2018Q3

REPORT INFORMATION
  Report Type: Report from Study
  Country: CO (occurrence: CO)
  Receive Date: 20180910
  Receipt Date: 20180910
  Transmission Date: 20181010
  Serious: Yes (Other)
  Sender: FDA-Public Use
  Company Number: CO-SHIRE-CO201834355

PATIENT

DRUGS (1)
  1. ADVATE [Suspect]
     Active Substance: ANTIHEMOPHILIC FACTOR, HUMAN RECOMBINANT
     Indication: FACTOR VIII DEFICIENCY
     Dosage: 500 IU, UNK
     Route: 042
     Dates: start: 20170523

REACTIONS (4)
  - Haemorrhage [Unknown]
  - Asthenia [Unknown]
  - Loss of consciousness [Unknown]
  - Pallor [Unknown]

NARRATIVE: CASE EVENT DATE: 201802
